FAERS Safety Report 8033243-9 (Version None)
Quarter: 2011Q4

REPORT INFORMATION
  Report Type: 
  Country: None (occurrence: None)
  Receive Date: 20111202
  Receipt Date: 20101014
  Transmission Date: 20120403
  Serious: Yes (Disabling)
  Sender: FDA-Public Use
  Company Number: WAES 0809USA02852

PATIENT
  Age: 62 Year
  Sex: Female
  Weight: 60.782 kg

DRUGS (2)
  1. FOSAMAX [Suspect]
     Indication: OSTEOPENIA
     Dosage: 70 MG/PO 35 MG/PO
     Route: 048
     Dates: start: 20020719, end: 20020805
  2. FOSAMAX [Suspect]
     Indication: OSTEOPENIA
     Dosage: 70 MG/PO 35 MG/PO
     Route: 048
     Dates: start: 20020901, end: 20090301

REACTIONS (24)
  - OSTEONECROSIS OF JAW [None]
  - BLOOD GLUCOSE INCREASED [None]
  - FLATULENCE [None]
  - OVARIAN FAILURE [None]
  - MUSCULOSKELETAL CHEST PAIN [None]
  - TEMPOROMANDIBULAR JOINT SYNDROME [None]
  - NAUSEA [None]
  - HIATUS HERNIA [None]
  - GASTRIC DISORDER [None]
  - HYPOAESTHESIA ORAL [None]
  - LIPIDS INCREASED [None]
  - PARAESTHESIA ORAL [None]
  - NERVOUSNESS [None]
  - MUSCLE SPASMS [None]
  - BLOOD CHOLESTEROL INCREASED [None]
  - HOT FLUSH [None]
  - INSOMNIA [None]
  - MYALGIA [None]
  - BRUXISM [None]
  - BONE DISORDER [None]
  - GINGIVAL BLEEDING [None]
  - ABDOMINAL DISTENSION [None]
  - EAR DISORDER [None]
  - DEPRESSION [None]
